FAERS Safety Report 8542189-9 (Version None)
Quarter: 2012Q3

REPORT INFORMATION
  Report Type: 
  Country: None (occurrence: None)
  Receive Date: 20120726
  Receipt Date: 20111005
  Transmission Date: 20120928
  Serious: No
  Sender: FDA-Public Use
  Company Number: US-ASTRAZENECA-2011SE59916

PATIENT
  Age: 42 Year
  Sex: Female
  Weight: 59 kg

DRUGS (3)
  1. HALDOL [Suspect]
     Indication: CRANIOCEREBRAL INJURY
     Route: 048
  2. SEROQUEL [Suspect]
     Indication: CRANIOCEREBRAL INJURY
     Route: 048
     Dates: start: 20110804
  3. GEODON [Suspect]
     Indication: CRANIOCEREBRAL INJURY
     Route: 048

REACTIONS (3)
  - AGITATION [None]
  - DRUG DOSE OMISSION [None]
  - HYPERSOMNIA [None]
